FAERS Safety Report 23706329 (Version 1)
Quarter: 2024Q2

REPORT INFORMATION
  Report Type: Spontaneous
  Country: US (occurrence: None)
  Receive Date: 20240403
  Receipt Date: 20240403
  Transmission Date: 20240715
  Serious: Yes (Hospitalization)
  Sender: FDA-Public Use
  Company Number: None

PATIENT
  Age: 42 Year
  Sex: Female

DRUGS (2)
  1. ONABOTULINUMTOXINA [Suspect]
     Active Substance: ONABOTULINUMTOXINA
     Indication: Skin cosmetic procedure
     Dosage: MULTIPLE TIMES ?
     Route: 065
     Dates: start: 20240228, end: 20240316
  2. BOTOX [Suspect]
     Active Substance: ONABOTULINUMTOXINA
     Dates: start: 20240228, end: 20240316

REACTIONS (9)
  - Dysphonia [None]
  - Vision blurred [None]
  - Dyspnoea exertional [None]
  - Facial paralysis [None]
  - Eyelid ptosis [None]
  - Lethargy [None]
  - Lacrimation increased [None]
  - Fatigue [None]
  - Photophobia [None]

NARRATIVE: CASE EVENT DATE: 20240323
